FAERS Safety Report 5704082-6 (Version None)
Quarter: 2008Q2

REPORT INFORMATION
  Report Type: 
  Country: None (occurrence: None)
  Receive Date: 20080414
  Receipt Date: 20080409
  Transmission Date: 20081010
  Serious: Yes (Hospitalization)
  Sender: FDA-Public Use
  Company Number: FR-BRISTOL-MYERS SQUIBB COMPANY-13977582

PATIENT
  Age: 65 Year
  Sex: Male

DRUGS (1)
  1. GLUCOVANCE [Suspect]
     Indication: TYPE 2 DIABETES MELLITUS
     Dosage: THE PATIENT WAS TREATED WITH METFORMIN+GLIBENCLAMIDE (2.5 MG/500) 5-DOSAGE FORMS /DAY SINCE APR-07
     Route: 048
     Dates: start: 20070401, end: 20070728

REACTIONS (1)
  - CYTOLYTIC HEPATITIS [None]
